FAERS Safety Report 7796783-3 (Version None)
Quarter: 2011Q4

REPORT INFORMATION
  Report Type: 
  Country: None (occurrence: None)
  Receive Date: 20111005
  Receipt Date: 20110927
  Transmission Date: 20120403
  Serious: Yes (Other)
  Sender: FDA-Public Use
  Company Number: US-BAYER-2011-091272

PATIENT
  Sex: Female

DRUGS (6)
  1. YASMIN [Concomitant]
     Indication: CONTRACEPTION
     Dosage: UNK
  2. LOESTRIN 1.5/30 [Concomitant]
  3. SAFYRAL [Suspect]
     Dosage: UNK
  4. YASMIN [Concomitant]
     Indication: MENSTRUATION IRREGULAR
  5. MINERVA [Concomitant]
  6. ORAL CONTRACEPTIVE NOS [Concomitant]

REACTIONS (1)
  - VAGINAL HAEMORRHAGE [None]
